FAERS Safety Report 8787240 (Version 4)
Quarter: 2013Q1

REPORT INFORMATION
  Report Type: Spontaneous
  Country: CA (occurrence: CA)
  Receive Date: 20120914
  Receipt Date: 20130124
  Transmission Date: 20140127
  Serious: Yes (Other)
  Sender: FDA-Public Use
  Company Number: CA-AMGEN-CANSP2012056603

PATIENT
  Age: 31 Year
  Sex: Female
  Weight: 52.3 kg

DRUGS (6)
  1. ARANESP [Suspect]
     Indication: ANAEMIA
     Dosage: UNK UNK, QWK
     Route: 058
     Dates: start: 20070215
  2. ARANESP [Suspect]
     Dosage: 150 MUG, QWK
     Route: 058
  3. PREDNISONE [Concomitant]
     Indication: IMMUNOSUPPRESSANT DRUG THERAPY
     Dosage: 5 MG, QD
     Route: 048
     Dates: start: 200306
  4. CAPTAGON [Concomitant]
     Indication: CYSTINOSIS
     Dosage: 400 MG, QID
     Route: 048
  5. TACROLIMUS [Concomitant]
     Indication: IMMUNOSUPPRESSANT DRUG THERAPY
     Dosage: 4.5 MG, BID
     Dates: start: 200306
  6. LOSEC                              /00661201/ [Concomitant]
     Dosage: 20 MG, QD
     Route: 048
     Dates: start: 200309

REACTIONS (2)
  - Aplasia pure red cell [Not Recovered/Not Resolved]
  - Anti-erythropoietin antibody positive [Unknown]
